FAERS Safety Report 9579390 (Version 1)
Quarter: 2013Q4

REPORT INFORMATION
  Report Type: Spontaneous
  Country: US (occurrence: US)
  Receive Date: 20131001
  Receipt Date: 20131001
  Transmission Date: 20140711
  Serious: No
  Sender: FDA-Public Use
  Company Number: US-AMGEN-USASP2013017446

PATIENT
  Age: 51 Year
  Sex: Female
  Weight: 122.45 kg

DRUGS (5)
  1. ENBREL [Suspect]
     Indication: PRODUCT USED FOR UNKNOWN INDICATION
     Dosage: 50 MG, QWK
     Route: 058
  2. DIOVAN [Concomitant]
     Dosage: 40 MG, UNK
  3. ZOLOFT [Concomitant]
     Dosage: 25 MG, UNK
  4. LEVOXYL [Concomitant]
     Dosage: 25 MUG, UNK
  5. BABY ASPIRIN [Concomitant]
     Dosage: 81 MG, UNK

REACTIONS (2)
  - Pruritus [Unknown]
  - Feeling hot [Unknown]
